FAERS Safety Report 5609104-9 (Version None)
Quarter: 2008Q1

REPORT INFORMATION
  Report Type: 
  Country: None (occurrence: None)
  Receive Date: 20080131
  Receipt Date: 20080129
  Transmission Date: 20080703
  Serious: Yes (Hospitalization, Other)
  Sender: FDA-Public Use
  Company Number: AT-BRISTOL-MYERS SQUIBB COMPANY-13981584

PATIENT
  Age: 55 Year
  Sex: Male
  Weight: 102 kg

DRUGS (8)
  1. ORENCIA [Suspect]
     Indication: PSORIATIC ARTHROPATHY
     Dosage: SECOND DOSE GIVEN ON 05OCT07 AND THIRD DOSE GIVEN ON 19OCT07
     Route: 042
     Dates: start: 20070921, end: 20071019
  2. SERACTIL FORTE [Concomitant]
     Route: 048
  3. NEXIUM [Concomitant]
     Route: 048
  4. FOSAMAX [Concomitant]
     Route: 048
  5. CALCIUM GLUCONATE [Concomitant]
     Route: 048
  6. FOLSAN [Concomitant]
     Route: 048
  7. NOVALGIN [Concomitant]
     Dosage: NOVALGIN TROPFEN
     Route: 048
  8. PREDNISOLONE [Concomitant]
     Route: 048

REACTIONS (1)
  - PROSTATE CANCER [None]
